FAERS Safety Report 12075056 (Version 1)
Quarter: 2016Q1

REPORT INFORMATION
  Report Type: Spontaneous
  Country: ZA (occurrence: ZA)
  Receive Date: 20160212
  Receipt Date: 20160212
  Transmission Date: 20160526
  Serious: Yes (Other)
  Sender: FDA-Public Use
  Company Number: ZA-ASTRAZENECA-2016SE15359

PATIENT

DRUGS (2)
  1. NEXIAM [Suspect]
     Active Substance: ESOMEPRAZOLE
     Route: 064
     Dates: start: 20151128
  2. ARCOXIA [Concomitant]
     Active Substance: ETORICOXIB
     Route: 064

REACTIONS (1)
  - Small for dates baby [Unknown]
